FAERS Safety Report 17318447 (Version 2)
Quarter: 2020Q1

REPORT INFORMATION
  Report Type: Report from Study
  Country: IT (occurrence: IT)
  Receive Date: 20200124
  Receipt Date: 20200203
  Transmission Date: 20200409
  Serious: Yes (Life-Threatening, Hospitalization)
  Sender: FDA-Public Use
  Company Number: IT-CELGENEUS-ITA-20200108370

PATIENT
  Age: 53 Year
  Sex: Male

DRUGS (6)
  1. CARFILZOMIB [Suspect]
     Active Substance: CARFILZOMIB
     Indication: MANTLE CELL LYMPHOMA
     Dosage: 36.8 MILLIGRAM
     Route: 041
     Dates: start: 20191115, end: 20200118
  2. REVLIMID [Suspect]
     Active Substance: LENALIDOMIDE
     Indication: MANTLE CELL LYMPHOMA
     Dosage: 25 MILLIGRAM
     Route: 048
     Dates: start: 20191115, end: 20200121
  3. POSACONAZOLO [Concomitant]
     Indication: BRONCHOPULMONARY ASPERGILLOSIS
     Route: 065
     Dates: start: 201907
  4. PREDNISONE. [Suspect]
     Active Substance: PREDNISONE
     Indication: MANTLE CELL LYMPHOMA
     Route: 048
     Dates: start: 20191115, end: 20200121
  5. VORICONAZOLO [Concomitant]
     Indication: BRONCHOPULMONARY ASPERGILLOSIS
     Route: 065
  6. ISAVUCONAZOLO [Concomitant]
     Indication: BRONCHOPULMONARY ASPERGILLOSIS
     Route: 065
     Dates: end: 201907

REACTIONS (2)
  - Hepatotoxicity [Not Recovered/Not Resolved]
  - Blood bilirubin increased [Not Recovered/Not Resolved]

NARRATIVE: CASE EVENT DATE: 20200122
